FAERS Safety Report 6994402-7 (Version None)
Quarter: 2010Q3

REPORT INFORMATION
  Report Type: 
  Country: None (occurrence: None)
  Receive Date: 20100917
  Receipt Date: 20100909
  Transmission Date: 20110219
  Serious: Yes (Other)
  Sender: FDA-Public Use
  Company Number: JP-JNJFOC-20100905010

PATIENT
  Age: 58 Year
  Sex: Female

DRUGS (2)
  1. HALOPERIDOL [Suspect]
     Indication: SCHIZOPHRENIA
     Route: 065
  2. FLUNITRAZEPAM [Suspect]
     Indication: SCHIZOPHRENIA
     Route: 065

REACTIONS (1)
  - TORTICOLLIS [None]
